FAERS Safety Report 7313812-1 (Version None)
Quarter: 2011Q1

REPORT INFORMATION
  Report Type: 
  Country: None (occurrence: None)
  Receive Date: 20110225
  Receipt Date: 20110217
  Transmission Date: 20110831
  Serious: Yes (Hospitalization, Other)
  Sender: FDA-Public Use
  Company Number: CA-PFIZER INC-2009226020

PATIENT
  Age: 69 Year
  Sex: Female

DRUGS (29)
  1. METFORMIN [Concomitant]
     Dosage: 1 G, 2X/DAY
     Dates: end: 20090301
  2. NOVOMIX [Concomitant]
     Dosage: 4 UNITS IN THE MORNING AND 6 UNITS IN THE EVENING
     Dates: start: 20090301
  3. ATACAND [Concomitant]
     Dosage: 8 MG, 1X/DAY
     Dates: start: 20051122, end: 20090319
  4. ATACAND [Concomitant]
     Dosage: UNK
     Dates: end: 20051101
  5. MAVIK [Concomitant]
     Dosage: 1 MG, 1X/DAY
     Dates: start: 20051122
  6. GLYBURIDE [Concomitant]
     Dosage: UNK
     Dates: end: 20090201
  7. COLACE [Concomitant]
     Dosage: 20 MG, 1X/DAY
  8. ASA [Concomitant]
     Dosage: UNK
  9. HYDRALAZINE [Concomitant]
     Dosage: 50 MG, 4X/DAY
  10. SENOKOT [Concomitant]
     Dosage: 1 TABLET, 2X/DAY
  11. SENOKOT [Concomitant]
     Dosage: 2 TABLETS, 1X/DAY
  12. NOVOMIX [Concomitant]
     Dosage: 14 UNITS IN THE MORNING AND 12 UNITS IN THE EVENING
     Dates: start: 20090101, end: 20090301
  13. CHLORTHALIDONE [Concomitant]
     Dosage: 50 MG, 1X/DAY
  14. CHLORTHALIDONE [Concomitant]
     Dosage: 25 MG, 1X/DAY
     Dates: start: 20080903
  15. LIPITOR [Suspect]
     Dosage: 80 MG, UNK
     Dates: start: 20090101
  16. DIABETA [Concomitant]
     Dosage: UNK
     Dates: end: 20090201
  17. METFORMIN [Concomitant]
     Dosage: 500 MG, 2X/DAY
     Dates: end: 20090301
  18. ASA [Concomitant]
     Dosage: 81 MG, UNK
  19. TRAZODONE [Concomitant]
     Dosage: 12.5 MG, NIGHTLY, AS NEEDED
  20. NITROGLYCERIN [Concomitant]
     Indication: ANGINA PECTORIS
     Dosage: UNK
  21. METOPROLOL [Concomitant]
     Dosage: 75 MG, 1X/DAY
  22. METOPROLOL [Concomitant]
     Dosage: 12.5 MG, 2X/DAY
  23. MEVACOR [Concomitant]
     Dosage: UNK
     Dates: end: 20010720
  24. NITRODUR II [Concomitant]
     Dosage: 0.6 MG, 1X/DAY
  25. METOPROLOL [Concomitant]
     Dosage: 25 MG, 2X/DAY
     Dates: start: 20051122
  26. ASA [Concomitant]
     Dosage: 325 MG, 1X/DAY
  27. LIPITOR [Suspect]
     Dosage: 20 MG, 1X/DAY
     Dates: start: 20071106, end: 20090101
  28. PLAVIX [Concomitant]
     Dosage: 75 MG, 1X/DAY
  29. CELEXA [Concomitant]
     Dosage: 20 MG, 1X/DAY
     Dates: start: 20050212

REACTIONS (5)
  - ACUTE MYOCARDIAL INFARCTION [None]
  - RHABDOMYOLYSIS [None]
  - RENAL FAILURE ACUTE [None]
  - DEPRESSED MOOD [None]
  - DUODENAL PERFORATION [None]
